FAERS Safety Report 9304478 (Version 2)
Quarter: 2013Q3

REPORT INFORMATION
  Report Type: Spontaneous
  Country: US (occurrence: US)
  Receive Date: 20130523
  Receipt Date: 20130731
  Transmission Date: 20140515
  Serious: No
  Sender: FDA-Public Use
  Company Number: US-009507513-1305USA011936

PATIENT
  Sex: Female
  Weight: 74.83 kg

DRUGS (24)
  1. COZAAR [Suspect]
     Indication: HYPERTENSION
     Dosage: 10 MG, UNK
     Route: 048
  2. COZAAR [Suspect]
  3. LIPITOR [Concomitant]
     Indication: BLOOD CHOLESTEROL INCREASED
     Dosage: 10 MG, DAILY AT NIGHT
     Route: 048
     Dates: start: 200303
  4. LIPITOR [Concomitant]
     Dosage: 20 MG, QD
     Route: 048
     Dates: end: 20130317
  5. PRAVASTATIN SODIUM [Concomitant]
     Indication: BLOOD CHOLESTEROL INCREASED
  6. SPIRONOLACTONE [Concomitant]
     Indication: DIURETIC THERAPY
     Dosage: 25 MG, QD
  7. METOPROLOL [Concomitant]
     Indication: HYPERTENSION
     Dosage: UNK, BID
  8. OMEPRAZOLE [Concomitant]
     Indication: GASTROOESOPHAGEAL REFLUX DISEASE
     Dosage: UNK
     Route: 048
  9. JANUVIA [Concomitant]
     Indication: DIABETES MELLITUS
     Dosage: 100 MG, QD
     Route: 048
  10. METFORMIN [Concomitant]
     Indication: DIABETES MELLITUS
     Dosage: 250 MG, BID
  11. GLYBURIDE [Concomitant]
     Indication: DIABETES MELLITUS
     Dosage: 1.5 MG, DAILY
     Route: 048
  12. GLYBURIDE [Concomitant]
     Dosage: 2, BID
  13. ASPIRIN [Concomitant]
     Dosage: UNK
  14. VITAMINS (UNSPECIFIED) [Concomitant]
     Dosage: UNK UNK, QD
  15. VITAMIN D (UNSPECIFIED) [Concomitant]
     Dosage: UNK
  16. OMEGA-3 MARINE TRIGLYCERIDES [Concomitant]
     Dosage: 1000MG, QD
     Route: 048
  17. FLAXSEED [Concomitant]
     Dosage: UNK, QD
  18. HYDROCHLOROTHIAZIDE [Concomitant]
     Dosage: 12.5 MG, QD
     Route: 048
  19. KLONOPIN [Concomitant]
     Dosage: 0.5 MG, QD
     Route: 048
  20. LEVOTHYROXINE SODIUM [Concomitant]
     Dosage: 1 DF, QD
     Route: 048
  21. LOPRESSOR [Concomitant]
     Dosage: 50 MG, BID
     Route: 048
  22. PROTONIX [Concomitant]
     Dosage: 1 DF, QD
     Route: 048
  23. CHOLECALCIFEROL [Concomitant]
     Dosage: UNK, QD
     Route: 048
  24. ZOCOR [Concomitant]
     Indication: BLOOD CHOLESTEROL INCREASED
     Dosage: 40 MG, QD
     Route: 048

REACTIONS (2)
  - Drug hypersensitivity [Unknown]
  - Drug ineffective [Unknown]
